FAERS Safety Report 18642528 (Version 1)
Quarter: 2020Q4

REPORT INFORMATION
  Report Type: Report from Study
  Country: US (occurrence: US)
  Receive Date: 20201221
  Receipt Date: 20201221
  Transmission Date: 20210114
  Serious: Yes (Other)
  Sender: FDA-Public Use
  Company Number: US-BAYER-2020-228594

PATIENT
  Age: 57 Year
  Sex: Female
  Weight: 53.12 kg

DRUGS (3)
  1. ASPIRIN (CARDIO) [Suspect]
     Active Substance: ASPIRIN
     Dosage: UNK
  2. XARELTO [Suspect]
     Active Substance: RIVAROXABAN
     Indication: DEEP VEIN THROMBOSIS
     Dosage: 20 MG, QD
     Route: 048
     Dates: start: 20190424
  3. XARELTO [Suspect]
     Active Substance: RIVAROXABAN
     Indication: DEEP VEIN THROMBOSIS
     Dosage: 10 MG, QD
     Route: 048

REACTIONS (7)
  - Pruritus [Not Recovered/Not Resolved]
  - Constipation [Unknown]
  - Haematochezia [Recovered/Resolved]
  - Gastrooesophageal reflux disease [Recovering/Resolving]
  - Burning sensation [Not Recovered/Not Resolved]
  - Blood urine present [Recovered/Resolved]
  - Migraine [Not Recovered/Not Resolved]

NARRATIVE: CASE EVENT DATE: 20190501
